FAERS Safety Report 9877926 (Version 2)
Quarter: 2014Q1

REPORT INFORMATION
  Report Type: Spontaneous
  Country: US (occurrence: None)
  Receive Date: 20140204
  Receipt Date: 20140212
  Transmission Date: 20141002
  Serious: Yes (Other)
  Sender: FDA-Public Use
  Company Number: 2014-US-000845

PATIENT
  Age: 53 Year
  Sex: Female
  Weight: 104.2 kg

DRUGS (8)
  1. XYREM [Suspect]
     Indication: NARCOLEPSY
     Route: 048
     Dates: start: 201206, end: 2012
  2. IMMUNOGLOBULINS [Suspect]
     Indication: MYASTHENIA GRAVIS
     Dosage: PARENTERAL
     Route: 051
  3. ADDERALL (AMFETAMINE ASPARTATE, AMFETAMINE SULFATE, DEXAMFETAMINE SACCHARATE, DEXAMFETAMINE SULFATE) [Concomitant]
  4. AZITHROMYCIN (AZITHROMYCIN) [Concomitant]
  5. MORPHINE SULFATE (MORPHINE SULFATE) INJECTION [Concomitant]
  6. MS CONTIN (MORPHINE SULFATE) [Concomitant]
  7. FIORICET (BUTALBITAL, CAFFEINE, PARACETAMOL) [Concomitant]
  8. HYDROCORTISONE (HYDROCORTISONE) [Concomitant]

REACTIONS (23)
  - Myasthenia gravis [None]
  - Back pain [None]
  - Neck pain [None]
  - Intervertebral disc degeneration [None]
  - Spinal column stenosis [None]
  - Drug hypersensitivity [None]
  - Tinnitus [None]
  - Temperature intolerance [None]
  - Arthralgia [None]
  - Vomiting [None]
  - Nausea [None]
  - Rash [None]
  - Pyrexia [None]
  - Fatigue [None]
  - Somnolence [None]
  - Myalgia [None]
  - Back pain [None]
  - Musculoskeletal stiffness [None]
  - Cough [None]
  - Dizziness [None]
  - Muscular weakness [None]
  - Dysphagia [None]
  - Headache [None]
